FAERS Safety Report 7410742-1 (Version None)
Quarter: 2011Q2

REPORT INFORMATION
  Report Type: 
  Country: None (occurrence: None)
  Receive Date: 20110413
  Receipt Date: 20110405
  Transmission Date: 20111010
  Serious: Yes (Death)
  Sender: FDA-Public Use
  Company Number: JP-BRISTOL-MYERS SQUIBB COMPANY-15559958

PATIENT
  Age: 48 Year
  Sex: Male

DRUGS (1)
  1. BARACLUDE [Suspect]
     Indication: LIVER DISORDER
     Dosage: 2008
     Route: 048
     Dates: start: 20081129

REACTIONS (2)
  - HEPATIC NEOPLASM MALIGNANT [None]
  - BLOOD CALCIUM INCREASED [None]
